FAERS Safety Report 14433674 (Version 2)
Quarter: 2018Q2

REPORT INFORMATION
  Report Type: Spontaneous
  Country: US (occurrence: US)
  Receive Date: 20180124
  Receipt Date: 20180424
  Transmission Date: 20180711
  Serious: Yes (Hospitalization, Other)
  Sender: FDA-Public Use
  Company Number: US-GLAXOSMITHKLINE-US2018011265

PATIENT
  Age: 71 Year
  Sex: Female

DRUGS (10)
  1. ADVAIR HFA [Suspect]
     Active Substance: FLUTICASONE PROPIONATE\SALMETEROL XINAFOATE
     Indication: ASTHMA
     Dosage: 2 PUFF(S), BID
     Route: 055
  2. LEVOTHYROXINE. [Concomitant]
     Active Substance: LEVOTHYROXINE
  3. PROAIR HFA [Concomitant]
     Active Substance: ALBUTEROL SULFATE
  4. METOPROLOL. [Suspect]
     Active Substance: METOPROLOL
     Indication: ARRHYTHMIA
     Dosage: 25 MG, UNK
     Dates: start: 201308
  5. VITAMIN D3 [Concomitant]
     Active Substance: CHOLECALCIFEROL
  6. BREO ELLIPTA [Suspect]
     Active Substance: FLUTICASONE FUROATE\VILANTEROL TRIFENATATE
     Indication: PRODUCT USED FOR UNKNOWN INDICATION
     Dosage: UNK
  7. BUPROPION. [Concomitant]
     Active Substance: BUPROPION
  8. ZYRTEC [Concomitant]
     Active Substance: CETIRIZINE HYDROCHLORIDE
  9. ZANTAC [Concomitant]
     Active Substance: RANITIDINE HYDROCHLORIDE
  10. CITALOPRAM [Concomitant]
     Active Substance: CITALOPRAM HYDROBROMIDE

REACTIONS (5)
  - Arthroscopy [Unknown]
  - Labelled drug-drug interaction medication error [Unknown]
  - Arrhythmia [Unknown]
  - Drug prescribing error [Unknown]
  - Hip arthroplasty [Unknown]

NARRATIVE: CASE EVENT DATE: 201308
